FAERS Safety Report 16687419 (Version 1)
Quarter: 2019Q4

REPORT INFORMATION
  Report Type: Spontaneous
  Country: US (occurrence: US)
  Receive Date: 20190808
  Receipt Date: 20190808
  Transmission Date: 20200122
  Serious: Yes (Hospitalization)
  Sender: FDA-Public Use
  Company Number: None

PATIENT
  Age: 76 Year
  Sex: Female

DRUGS (4)
  1. EVOXAC, PRILOSEC, INCRUSE ELPITICS, PLAQUENIL, PREDNISONE, MULTIVITAMI [Concomitant]
  2. FLONASE, SINGULAIR, LASIX, NORVASC, BONIVA, RA CALCIUM [Concomitant]
  3. ENBREL [Suspect]
     Active Substance: ETANERCEPT
     Indication: RHEUMATOID ARTHRITIS
     Dosage: ?          OTHER FREQUENCY:WEEKLY;?
     Route: 058
     Dates: start: 20150828
  4. TRELEGY, SYNTHROID, CLARINEX, POTASSIUM CITRATE, LOPRESSOR, DIOVAN [Concomitant]

REACTIONS (1)
  - Lower limb fracture [None]

NARRATIVE: CASE EVENT DATE: 20190807
